FAERS Safety Report 10713436 (Version 1)
Quarter: 2015Q1

REPORT INFORMATION
  Report Type: Spontaneous
  Country: CO (occurrence: CO)
  Receive Date: 20150115
  Receipt Date: 20150115
  Transmission Date: 20150721
  Serious: Yes (Hospitalization)
  Sender: FDA-Public Use
  Company Number: CO-PFIZER INC-2014296454

PATIENT
  Age: 11 Year
  Sex: Female
  Weight: 29 kg

DRUGS (3)
  1. FOLIC ACID. [Concomitant]
     Active Substance: FOLIC ACID
     Indication: ANAEMIA
     Dosage: 1 MG, DAILY
     Route: 048
     Dates: start: 201401
  2. GENOTROPIN [Suspect]
     Active Substance: SOMATROPIN
     Dosage: 1 MG, DAILY
     Route: 058
     Dates: start: 201406, end: 20141002
  3. GENOTROPIN [Suspect]
     Active Substance: SOMATROPIN
     Indication: GROWTH HORMONE DEFICIENCY
     Dosage: 0.9 MG, DAILY
     Route: 058
     Dates: start: 20140408, end: 201406

REACTIONS (3)
  - Neck mass [Recovering/Resolving]
  - Drug ineffective [Unknown]
  - Viral infection [Unknown]

NARRATIVE: CASE EVENT DATE: 20140815
